FAERS Safety Report 4500755-1 (Version None)
Quarter: 2004Q4

REPORT INFORMATION
  Report Type: 
  Country: None (occurrence: None)
  Receive Date: 20041109
  Receipt Date: 20041021
  Transmission Date: 20050328
  Serious: Yes (Other)
  Sender: FDA-Public Use
  Company Number: USA041081799

PATIENT
  Age: 47 Year
  Sex: Male
  Weight: 82 kg

DRUGS (5)
  1. HUMULIN 70/30 [Suspect]
     Dates: end: 20040801
  2. HUMULIN R [Suspect]
     Dates: start: 19630101
  3. HUMULIN N [Suspect]
     Dates: start: 19630101
  4. HUMALOG [Suspect]
     Dosage: 3 U AS NEEDED
     Dates: start: 20040801
  5. LANTUS [Concomitant]

REACTIONS (8)
  - BLOOD GLUCOSE FLUCTUATION [None]
  - CEREBROVASCULAR ACCIDENT [None]
  - DIABETIC RETINOPATHY [None]
  - DIALYSIS [None]
  - OCULAR VASCULAR DISORDER [None]
  - RENAL FAILURE [None]
  - VISUAL ACUITY REDUCED [None]
  - VISUAL DISTURBANCE [None]
